FAERS Safety Report 10597386 (Version 2)
Quarter: 2014Q4

REPORT INFORMATION
  Report Type: Spontaneous
  Country: CH (occurrence: CH)
  Receive Date: 20141121
  Receipt Date: 20141201
  Transmission Date: 20150529
  Serious: Yes (Other)
  Sender: FDA-Public Use
  Company Number: PHHY2014CH146224

PATIENT
  Age: 52 Year
  Sex: Female

DRUGS (2)
  1. EXEMESTANE. [Concomitant]
     Active Substance: EXEMESTANE
     Indication: BREAST CANCER METASTATIC
     Route: 065
  2. AFINITOR [Suspect]
     Active Substance: EVEROLIMUS
     Indication: BREAST CANCER METASTATIC
     Dosage: 10 MG, QD
     Route: 065

REACTIONS (5)
  - Gastritis erosive [Unknown]
  - Gastrointestinal haemorrhage [Unknown]
  - Diarrhoea haemorrhagic [Unknown]
  - Thrombocytopenia [Unknown]
  - Duodenitis [Unknown]
